FAERS Safety Report 6542008-6 (Version None)
Quarter: 2010Q1

REPORT INFORMATION
  Report Type: 
  Country: None (occurrence: None)
  Receive Date: 20100119
  Receipt Date: 20100107
  Transmission Date: 20100710
  Serious: Yes (Death, Life-Threatening, Hospitalization)
  Sender: FDA-Public Use
  Company Number: BE-PFIZER INC-2009311849

PATIENT
  Age: 54 Year
  Sex: Female
  Weight: 48 kg

DRUGS (6)
  1. SUNITINIB MALATE [Suspect]
     Indication: OESOPHAGEAL ADENOCARCINOMA
     Dosage: 50 MG, 1X/DAY
     Route: 048
     Dates: start: 20091130, end: 20091213
  2. MEDROL [Suspect]
     Indication: LYMPHADENOPATHY
     Dosage: 16 MG, 1X/DAY
     Route: 048
     Dates: start: 20090923
  3. SEROXAT ^CIBA-GEIGY^ [Concomitant]
  4. LORAZEPAM [Concomitant]
     Route: 048
  5. OMEPRAZOL [Concomitant]
     Dosage: 20 MG, 1X/DAY
     Route: 048
  6. CLEXANE [Concomitant]

REACTIONS (3)
  - GENERAL PHYSICAL HEALTH DETERIORATION [None]
  - PNEUMONIA [None]
  - SEPTIC SHOCK [None]
